FAERS Safety Report 4767335-4 (Version None)
Quarter: 2005Q3

REPORT INFORMATION
  Report Type: 
  Country: None (occurrence: None)
  Receive Date: 20050906
  Receipt Date: 20050504
  Transmission Date: 20060218
  Serious: No
  Sender: FDA-Public Use
  Company Number: 2005-BP-07511BP

PATIENT
  Age: 55 Year
  Sex: Female

DRUGS (10)
  1. SPIRIVA [Suspect]
     Indication: ASTHMA
     Dosage: 18 MCG (18 MCG, QD), IH
     Route: 055
     Dates: start: 20050301
  2. SPIRIVA [Suspect]
  3. SPIRIVA [Suspect]
  4. AEROBID [Concomitant]
  5. ALBUTEROL [Concomitant]
  6. ZOLOFT [Concomitant]
  7. SYNTHROID [Concomitant]
  8. BABY ASP (ACETYLSALICYLIC ACID) [Concomitant]
  9. CLARINEX [Concomitant]
  10. FLONASE [Concomitant]

REACTIONS (2)
  - AGEUSIA [None]
  - CHEST DISCOMFORT [None]
